FAERS Safety Report 21826405 (Version 1)
Quarter: 2023Q1

REPORT INFORMATION
  Report Type: Spontaneous
  Country: US (occurrence: US)
  Receive Date: 20230106
  Receipt Date: 20230106
  Transmission Date: 20230418
  Serious: No
  Sender: FDA-Public Use
  Company Number: US-SANOFI-01428324

PATIENT
  Sex: Female

DRUGS (1)
  1. MULTAQ [Interacting]
     Active Substance: DRONEDARONE
     Indication: Atrial fibrillation
     Dosage: 400 MG BID AND DRUG TREATMENT DURATION:NA
     Route: 065

REACTIONS (1)
  - Drug interaction [Unknown]
